FAERS Safety Report 9984339 (Version 1)
Quarter: 2014Q1

REPORT INFORMATION
  Report Type: Report from Study
  Country: US (occurrence: US)
  Receive Date: 20140307
  Receipt Date: 20140307
  Transmission Date: 20141002
  Serious: No
  Sender: FDA-Public Use
  Company Number: US-ABBVIE-13P-163-1181409-00

PATIENT
  Age: 54 Year
  Sex: Female
  Weight: 98.52 kg

DRUGS (14)
  1. HUMIRA [Suspect]
     Indication: COSTOCHONDRITIS
     Dates: start: 20131204, end: 20131204
  2. HUMIRA [Suspect]
     Indication: LEUKOCYTE ANTIGEN B-27 POSITIVE
  3. CLONOPIN [Concomitant]
     Indication: ANXIETY
  4. XANAX [Concomitant]
     Indication: ANXIETY
  5. LIPITOR [Concomitant]
     Indication: BLOOD CHOLESTEROL INCREASED
  6. LISINOPRIL HCTZ [Concomitant]
     Indication: HYPERTENSION
  7. PREVACID [Concomitant]
     Indication: DYSPEPSIA
  8. PREVACID [Concomitant]
     Indication: GASTROOESOPHAGEAL REFLUX DISEASE
  9. PREVACID [Concomitant]
     Indication: ABDOMINAL DISCOMFORT
  10. ASPIRIN [Concomitant]
     Indication: STENT PLACEMENT
     Dates: start: 2009
  11. VERAPAMIL [Concomitant]
     Indication: HEART RATE INCREASED
     Dates: start: 2009
  12. LORTAB [Concomitant]
     Indication: COSTOCHONDRITIS
  13. LORTAB [Concomitant]
     Indication: ARTHRALGIA
  14. FUROSEMIDE [Concomitant]
     Indication: FLUID RETENTION
     Dosage: ABOUT TWICE A MONTH

REACTIONS (5)
  - Respiratory tract congestion [Not Recovered/Not Resolved]
  - Streptococcal infection [Not Recovered/Not Resolved]
  - Tonsillitis [Recovered/Resolved]
  - Sputum discoloured [Not Recovered/Not Resolved]
  - Sinus congestion [Not Recovered/Not Resolved]
